FAERS Safety Report 5333224-X (Version None)
Quarter: 2007Q2

REPORT INFORMATION
  Report Type: 
  Country: None (occurrence: None)
  Receive Date: 20070524
  Receipt Date: 20070514
  Transmission Date: 20071010
  Serious: Yes (Other)
  Sender: FDA-Public Use
  Company Number: PHBS2007GB08255

PATIENT
  Age: 2 Year
  Sex: Male

DRUGS (10)
  1. AZATHIOPRINE [Concomitant]
     Indication: HEART TRANSPLANT
     Route: 065
  2. PREDNISOLONE [Concomitant]
     Indication: HEART TRANSPLANT
  3. CO-TRIMOXAZOLE [Concomitant]
  4. TRIMETHOPRIM [Concomitant]
  5. ACYCLOVIR [Concomitant]
  6. NEUPOGEN [Concomitant]
  7. BETA-LACTAM ANTIBACTERIALS, PENICILLINS [Concomitant]
  8. NYSTATIN [Concomitant]
  9. ITRACONAZOLE [Concomitant]
  10. CYCLOSPORINE [Suspect]
     Indication: HEART TRANSPLANT
     Route: 065

REACTIONS (18)
  - CAMPYLOBACTER GASTROENTERITIS [None]
  - COORDINATION ABNORMAL [None]
  - FUNGAL PERITONITIS [None]
  - GASTROINTESTINAL PERFORATION [None]
  - GROWTH RETARDATION [None]
  - HEART TRANSPLANT REJECTION [None]
  - HYPOTONIA [None]
  - KIDNEY TRANSPLANT REJECTION [None]
  - MUSCLE FATIGUE [None]
  - MUSCULAR WEAKNESS [None]
  - NEPHROPATHY TOXIC [None]
  - NEUTROPENIA [None]
  - PNEUMONIA HAEMOPHILUS [None]
  - RENAL FAILURE [None]
  - RENAL IMPAIRMENT [None]
  - RENAL TRANSPLANT [None]
  - RESPIRATORY FAILURE [None]
  - SEPSIS [None]
